FAERS Safety Report 16901791 (Version 1)
Quarter: 2019Q4

REPORT INFORMATION
  Report Type: Report from Study
  Country: IN (occurrence: IN)
  Receive Date: 20191010
  Receipt Date: 20191010
  Transmission Date: 20200122
  Serious: Yes (Other)
  Sender: FDA-Public Use
  Company Number: IN-BIOGEN-2019BI00794372

PATIENT
  Age: 21 Year

DRUGS (1)
  1. TECFIDERA [Suspect]
     Active Substance: DIMETHYL FUMARATE
     Indication: RELAPSING-REMITTING MULTIPLE SCLEROSIS
     Route: 048
     Dates: start: 20190702

REACTIONS (3)
  - Hepatitis A [Not Recovered/Not Resolved]
  - Vomiting [Not Recovered/Not Resolved]
  - Furuncle [Not Recovered/Not Resolved]
